FAERS Safety Report 9752531 (Version 2)
Quarter: 2013Q4

REPORT INFORMATION
  Report Type: Report from Study
  Country: JP (occurrence: JP)
  Receive Date: 20131213
  Receipt Date: 20131213
  Transmission Date: 20140711
  Serious: Yes (Hospitalization)
  Sender: FDA-Public Use
  Company Number: JP-NOVOPROD-394392

PATIENT
  Age: 4 Year
  Sex: Male
  Weight: 13.6 kg

DRUGS (1)
  1. NORDITROPIN FLEXPRO [Suspect]
     Indication: SMALL FOR DATES BABY
     Dosage: 0.4-0.5 MG DAILY
     Route: 058
     Dates: start: 20120426

REACTIONS (1)
  - Adenoidal hypertrophy [Recovering/Resolving]
